FAERS Safety Report 6400351-5 (Version None)
Quarter: 2009Q4

REPORT INFORMATION
  Report Type: 
  Country: None (occurrence: None)
  Receive Date: 20091014
  Receipt Date: 20091008
  Transmission Date: 20100525
  Serious: Yes (Hospitalization)
  Sender: FDA-Public Use
  Company Number: GB-TEVA-212054ISR

PATIENT
  Age: 48 Week
  Sex: Female

DRUGS (1)
  1. METHOTREXATE [Suspect]
     Indication: CONNECTIVE TISSUE DISORDER

REACTIONS (1)
  - EPSTEIN-BARR VIRUS ASSOCIATED LYMPHOPROLIFERATIVE DISORDER [None]
